FAERS Safety Report 8555639-9 (Version None)
Quarter: 2012Q3

REPORT INFORMATION
  Report Type: 
  Country: None (occurrence: None)
  Receive Date: 20120731
  Receipt Date: 20120601
  Transmission Date: 20120928
  Serious: Yes (Other)
  Sender: FDA-Public Use
  Company Number: IE-ELI_LILLY_AND_COMPANY-IE201207008847

PATIENT
  Age: 11 Year
  Sex: Male

DRUGS (3)
  1. STRATTERA [Suspect]
     Dosage: UNK UNK, UNKNOWN
     Dates: start: 20090101
  2. CONCERTA [Concomitant]
     Dosage: 54 MG, UNK
  3. CONCERTA [Concomitant]
     Dosage: 54 MG, QD
     Route: 048

REACTIONS (1)
  - NEUTROPHIL COUNT DECREASED [None]
